FAERS Safety Report 21052129 (Version 1)
Quarter: 2022Q3

REPORT INFORMATION
  Report Type: Spontaneous
  Country: US (occurrence: None)
  Receive Date: 20220706
  Receipt Date: 20220706
  Transmission Date: 20221026
  Serious: Yes (Hospitalization, Disabling, Other)
  Sender: FDA-Public Use
  Company Number: None

PATIENT
  Age: 64 Year
  Sex: Female
  Weight: 45.9 kg

DRUGS (5)
  1. CLONAZEPAM [Suspect]
     Active Substance: CLONAZEPAM
     Indication: Depression
     Dosage: OTHER QUANTITY : 1 TABLET(S);?FREQUENCY : 4 TIMES A DAY;?
     Dates: start: 20170801, end: 20220314
  2. CLONAZEPAM [Suspect]
     Active Substance: CLONAZEPAM
     Indication: Anxiety
  3. LORAZEPAM [Suspect]
     Active Substance: LORAZEPAM
     Indication: Insomnia
     Dosage: OTHER QUANTITY : 1 TABLET(S);?FREQUENCY : 4 TIMES A DAY;?
     Route: 048
     Dates: start: 20050501, end: 20170801
  4. LORAZEPAM [Suspect]
     Active Substance: LORAZEPAM
     Indication: Depression
  5. LORAZEPAM [Suspect]
     Active Substance: LORAZEPAM
     Indication: Anxiety

REACTIONS (15)
  - Withdrawal syndrome [None]
  - Emotional distress [None]
  - Anxiety [None]
  - Depression [None]
  - Housebound [None]
  - Loss of personal independence in daily activities [None]
  - Photosensitivity reaction [None]
  - Hypersensitivity myocarditis [None]
  - Tinnitus [None]
  - Headache [None]
  - Tremor [None]
  - Eye pain [None]
  - Myalgia [None]
  - Arthralgia [None]
  - Abdominal pain upper [None]

NARRATIVE: CASE EVENT DATE: 20220202
